FAERS Safety Report 17170428 (Version 2)
Quarter: 2019Q4

REPORT INFORMATION
  Report Type: Spontaneous
  Country: US (occurrence: US)
  Receive Date: 20191218
  Receipt Date: 20191230
  Transmission Date: 20200122
  Serious: Yes (Hospitalization, Other)
  Sender: FDA-Public Use
  Company Number: US-STRONGBRIDGE BIOPHARMA-2019-STR-000325

PATIENT
  Sex: Female

DRUGS (1)
  1. KEVEYIS [Suspect]
     Active Substance: DICHLORPHENAMIDE
     Indication: FAMILIAL PERIODIC PARALYSIS
     Dosage: 50 MG, BID
     Route: 048
     Dates: start: 20191204

REACTIONS (8)
  - Paraesthesia [Unknown]
  - Clumsiness [Unknown]
  - Hypoaesthesia [Unknown]
  - Spinal stroke [Unknown]
  - Muscle spasms [Unknown]
  - Hypokalaemia [Unknown]
  - Blood potassium decreased [Unknown]
  - Disease recurrence [Unknown]
